FAERS Safety Report 4582791-2 (Version None)
Quarter: 2005Q1

REPORT INFORMATION
  Report Type: 
  Country: None (occurrence: None)
  Receive Date: 20050215
  Receipt Date: 20050202
  Transmission Date: 20050727
  Serious: Yes (Hospitalization)
  Sender: FDA-Public Use
  Company Number: FR-GLAXOSMITHKLINE-B0369496A

PATIENT
  Age: 68 Year
  Sex: Male

DRUGS (7)
  1. DEROXAT [Suspect]
     Indication: DYSTHYMIC DISORDER
     Dosage: 20MG PER DAY
     Route: 048
     Dates: start: 20020101
  2. ALDACTONE [Suspect]
     Indication: ESSENTIAL HYPERTENSION
     Dosage: 12MG PER DAY
     Route: 048
     Dates: start: 20020101, end: 20041213
  3. TRINIPATCH [Suspect]
     Dosage: 1PAT PER DAY
     Route: 061
     Dates: start: 20020101, end: 20041213
  4. AMAREL [Suspect]
     Indication: DIABETES MELLITUS NON-INSULIN-DEPENDENT
     Dosage: 2UNIT PER DAY
     Route: 048
     Dates: end: 20041212
  5. DETENSIEL [Suspect]
     Indication: ESSENTIAL HYPERTENSION
     Dosage: 10MG PER DAY
     Route: 048
  6. TRIATEC [Suspect]
     Indication: ESSENTIAL HYPERTENSION
     Dosage: 2.5MG TWICE PER DAY
     Route: 048
  7. ZOCOR [Concomitant]

REACTIONS (7)
  - AUTONOMIC NERVOUS SYSTEM IMBALANCE [None]
  - CAROTID ARTERY STENOSIS [None]
  - DIABETES MELLITUS INADEQUATE CONTROL [None]
  - FALL [None]
  - HOT FLUSH [None]
  - MALAISE [None]
  - ORTHOSTATIC HYPOTENSION [None]
